FAERS Safety Report 8187233-6 (Version None)
Quarter: 2012Q1

REPORT INFORMATION
  Report Type: 
  Country: None (occurrence: None)
  Receive Date: 20120302
  Receipt Date: 20120220
  Transmission Date: 20120608
  Serious: Yes (Hospitalization, Disabling, Other)
  Sender: FDA-Public Use
  Company Number: 2012SP010099

PATIENT
  Age: 31 Year
  Sex: Female

DRUGS (4)
  1. DESOGESTREL AND ETHINYL ESTRADIOL [Suspect]
     Indication: CONTRACEPTION
     Dosage: 1 DF; QD; PO
     Route: 048
     Dates: start: 20110608, end: 20110726
  2. DESOGESTREL AND ETHINYL ESTRADIOL [Suspect]
     Indication: MENSTRUAL CYCLE MANAGEMENT
     Dosage: 1 DF; QD; PO
     Route: 048
     Dates: start: 20110608, end: 20110726
  3. BUFFERIN (MAGESIUM CARBONATE) [Concomitant]
  4. NORGESTREL AND ETHINYL ESTRADIOL [Concomitant]

REACTIONS (4)
  - VENOUS INSUFFICIENCY [None]
  - GAIT DISTURBANCE [None]
  - BACK PAIN [None]
  - DEEP VEIN THROMBOSIS [None]
